FAERS Safety Report 9322277 (Version 3)
Quarter: 2013Q3

REPORT INFORMATION
  Report Type: Spontaneous
  Country: JP (occurrence: JP)
  Receive Date: 20130531
  Receipt Date: 20130710
  Transmission Date: 20140515
  Serious: Yes (Hospitalization, Disabling)
  Sender: FDA-Public Use
  Company Number: JP-GLAXOSMITHKLINE-B0894327A

PATIENT
  Age: 81 Year
  Sex: Male
  Weight: 58 kg

DRUGS (7)
  1. ARIXTRA [Suspect]
     Indication: THROMBOSIS PROPHYLAXIS
     Dosage: 2.5MG PER DAY
     Route: 058
     Dates: start: 20130514, end: 20130517
  2. PREDONINE [Concomitant]
     Route: 065
  3. ELASPOL [Concomitant]
     Route: 042
  4. FESIN [Concomitant]
     Route: 042
  5. VANCOMYCIN HYDROCHLORIDE [Concomitant]
     Route: 065
  6. ZOSYN [Concomitant]
  7. UNKNOWN DRUG [Concomitant]
     Route: 065

REACTIONS (3)
  - Post procedural haemorrhage [Recovering/Resolving]
  - Retroperitoneal haematoma [Recovered/Resolved with Sequelae]
  - Gait disturbance [Unknown]
